FAERS Safety Report 7671995-8 (Version None)
Quarter: 2011Q3

REPORT INFORMATION
  Report Type: 
  Country: None (occurrence: None)
  Receive Date: 20110809
  Receipt Date: 20110801
  Transmission Date: 20111222
  Serious: Yes (Other)
  Sender: FDA-Public Use
  Company Number: FR-JNJFOC-20110709716

PATIENT
  Age: 54 Year
  Sex: Male

DRUGS (15)
  1. RISPERDAL [Suspect]
     Route: 048
  2. LEPTICUR [Suspect]
     Indication: PRODUCT USED FOR UNKNOWN INDICATION
     Route: 048
  3. VALDOXAN (AGOMELATINE) [Suspect]
     Route: 048
  4. VALDOXAN (AGOMELATINE) [Suspect]
     Route: 048
     Dates: start: 20110629, end: 20110629
  5. RISPERDAL [Suspect]
     Indication: PRODUCT USED FOR UNKNOWN INDICATION
     Route: 048
     Dates: start: 20110629, end: 20110629
  6. SOLIAN [Suspect]
     Route: 048
     Dates: start: 20110629, end: 20110629
  7. LORAZEPAM [Suspect]
     Route: 048
  8. LEPTICUR [Suspect]
     Route: 048
     Dates: end: 20110629
  9. SOLIAN [Suspect]
     Indication: PRODUCT USED FOR UNKNOWN INDICATION
     Route: 048
  10. SOLIAN [Suspect]
     Route: 048
     Dates: end: 20110629
  11. LORAZEPAM [Suspect]
     Indication: PRODUCT USED FOR UNKNOWN INDICATION
     Route: 048
     Dates: end: 20110629
  12. LEPTICUR [Suspect]
     Route: 048
     Dates: start: 20110629, end: 20110629
  13. VALDOXAN (AGOMELATINE) [Suspect]
     Indication: PRODUCT USED FOR UNKNOWN INDICATION
     Route: 048
     Dates: end: 20110629
  14. RISPERDAL [Suspect]
     Route: 048
     Dates: end: 20110629
  15. LORAZEPAM [Suspect]
     Route: 048
     Dates: start: 20110629, end: 20110629

REACTIONS (3)
  - MEDICATION ERROR [None]
  - INCORRECT DRUG ADMINISTRATION RATE [None]
  - SOMNOLENCE [None]
